FAERS Safety Report 25934567 (Version 9)
Quarter: 2025Q4

REPORT INFORMATION
  Report Type: Spontaneous
  Country: US (occurrence: US)
  Receive Date: 20251017
  Receipt Date: 20251224
  Transmission Date: 20260117
  Serious: No
  Sender: KARYOPHARM THERAPEUTICS
  Company Number: US-KARYOPHARM-2025KPT100831

PATIENT

DRUGS (10)
  1. SELINEXOR [Suspect]
     Active Substance: SELINEXOR
     Indication: Endometrial adenocarcinoma
     Dosage: 80 MG WEEKLY
     Route: 048
     Dates: start: 20251012, end: 2025
  2. SELINEXOR [Suspect]
     Active Substance: SELINEXOR
     Dosage: 40 MG WEEKLY
     Route: 048
     Dates: start: 2025, end: 2025
  3. SELINEXOR [Suspect]
     Active Substance: SELINEXOR
     Dosage: 60 MG WEEKLY
     Route: 048
     Dates: start: 2025, end: 2025
  4. SELINEXOR [Suspect]
     Active Substance: SELINEXOR
     Dosage: 60 MG WEEKLY
     Route: 048
     Dates: start: 20251117
  5. ATORVASTATIN [Concomitant]
     Active Substance: ATORVASTATIN
  6. ELIQUIS [Concomitant]
     Active Substance: APIXABAN
  7. MONTELUKAST [Concomitant]
     Active Substance: MONTELUKAST
  8. OLANZAPINE [Concomitant]
     Active Substance: OLANZAPINE
  9. TRIAMCINOLONE ACETONIDE [Concomitant]
     Active Substance: TRIAMCINOLONE ACETONIDE
  10. SINGULAIR [Concomitant]
     Active Substance: MONTELUKAST SODIUM

REACTIONS (12)
  - Hypoaesthesia [Unknown]
  - Chills [Unknown]
  - Burning sensation [Unknown]
  - Somnolence [Unknown]
  - Insomnia [Unknown]
  - Diarrhoea [Unknown]
  - Fatigue [Recovering/Resolving]
  - Nausea [Recovering/Resolving]
  - Decreased appetite [Not Recovered/Not Resolved]
  - Vomiting [Unknown]
  - Off label use [Unknown]
  - Product dose omission issue [Unknown]

NARRATIVE: CASE EVENT DATE: 20250101
